FAERS Safety Report 5029168-3 (Version None)
Quarter: 2006Q2

REPORT INFORMATION
  Report Type: 
  Country: None (occurrence: None)
  Receive Date: 20060613
  Receipt Date: 20060601
  Transmission Date: 20061013
  Serious: Yes (Hospitalization, Other)
  Sender: FDA-Public Use
  Company Number: EM2006-0194

PATIENT
  Age: 49 Year
  Sex: Male
  Weight: 75 kg

DRUGS (18)
  1. MACROLIN [Suspect]
     Indication: HIV INFECTION
     Dosage: 9 MIU, QD, SUBCUTAN.; SEE IMAGE
     Route: 058
     Dates: start: 20040705, end: 20040709
  2. MACROLIN [Suspect]
     Indication: HIV INFECTION
     Dosage: 9 MIU, QD, SUBCUTAN.; SEE IMAGE
     Route: 058
     Dates: start: 20040906, end: 20040910
  3. MACROLIN [Suspect]
     Indication: HIV INFECTION
     Dosage: 9 MIU, QD, SUBCUTAN.; SEE IMAGE
     Route: 058
     Dates: start: 20041103, end: 20041107
  4. MACROLIN [Suspect]
     Indication: HIV INFECTION
     Dosage: 9 MIU, QD, SUBCUTAN.; SEE IMAGE
     Route: 058
     Dates: start: 20050105, end: 20050109
  5. TRUVADA [Concomitant]
  6. REYATAZ [Concomitant]
  7. NORVIR [Concomitant]
  8. COMBIVIR [Concomitant]
  9. KETOCONAZOLE [Concomitant]
  10. DEBRIDAT ^IBRAHIM^ (TRIMEBUTINE MALEATE) [Concomitant]
  11. BACTRIM [Concomitant]
  12. FASTURTEC [Concomitant]
  13. SOLU-MEDROL [Concomitant]
  14. DEPO-MEDROL [Concomitant]
  15. ARACYTIN [Concomitant]
  16. METHOTREXATE [Concomitant]
  17. CYCLOPHOSPHAMIDE [Concomitant]
  18. MACROLIN [Suspect]

REACTIONS (8)
  - BURKITT'S LYMPHOMA [None]
  - CHOLESTASIS [None]
  - GENERAL PHYSICAL HEALTH DETERIORATION [None]
  - HYDRONEPHROSIS [None]
  - HYPERURICAEMIA [None]
  - HYPOKALAEMIA [None]
  - PANCREATIC DISORDER [None]
  - RENAL FAILURE ACUTE [None]
